FAERS Safety Report 9081525 (Version 1)
Quarter: 2013Q1

REPORT INFORMATION
  Report Type: Report from Study
  Country: US (occurrence: US)
  Receive Date: 20130130
  Receipt Date: 20130130
  Transmission Date: 20140127
  Serious: No
  Sender: FDA-Public Use
  Company Number: US-ABBOTT-12P-163-0957561-00

PATIENT
  Age: 44 Year
  Sex: Female

DRUGS (3)
  1. HUMIRA 40 MG/0.8 ML PEN [Suspect]
     Indication: CROHN^S DISEASE
     Dates: start: 20111115
  2. ZANTAC [Concomitant]
     Indication: INJECTION SITE SWELLING
  3. ALLEGRA [Concomitant]
     Indication: INJECTION SITE SWELLING

REACTIONS (4)
  - Injection site haemorrhage [Unknown]
  - Injection site swelling [Unknown]
  - Device malfunction [Recovered/Resolved]
  - Incorrect dose administered [Unknown]
